FAERS Safety Report 16552606 (Version 3)
Quarter: 2019Q3

REPORT INFORMATION
  Report Type: Spontaneous
  Country: US (occurrence: US)
  Receive Date: 20190710
  Receipt Date: 20190814
  Transmission Date: 20191004
  Serious: No
  Sender: FDA-Public Use
  Company Number: US-PFIZER INC-2019292736

PATIENT
  Age: 67 Year
  Sex: Female
  Weight: 73.3 kg

DRUGS (1)
  1. FLECTOR [Suspect]
     Active Substance: DICLOFENAC EPOLAMINE
     Indication: PAIN
     Dosage: UNK (1 PATCH TO EACH OF THREE AFFECTED AREAS TWICE DAILY)
     Route: 062

REACTIONS (4)
  - Off label use [Unknown]
  - Poor quality product administered [Unknown]
  - Drug ineffective for unapproved indication [Unknown]
  - Product adhesion issue [Unknown]
